FAERS Safety Report 9774779 (Version 2)
Quarter: 2014Q1

REPORT INFORMATION
  Report Type: Spontaneous
  Country: JP (occurrence: JP)
  Receive Date: 20131220
  Receipt Date: 20140116
  Transmission Date: 20141002
  Serious: Yes (Hospitalization)
  Sender: FDA-Public Use
  Company Number: JP-ASTRAZENECA-2013SE90954

PATIENT
  Age: 62 Year
  Sex: Male

DRUGS (2)
  1. PROPOFOL (NON AZ PRODUCT) [Suspect]
     Indication: SEDATION
     Route: 042
  2. PROPOFOL (NON AZ PRODUCT) [Suspect]
     Indication: SEDATION
     Route: 042

REACTIONS (1)
  - Ventricular tachycardia [Recovered/Resolved]
